FAERS Safety Report 6860206-9 (Version None)
Quarter: 2010Q3

REPORT INFORMATION
  Report Type: 
  Country: None (occurrence: None)
  Receive Date: 20100720
  Receipt Date: 20100712
  Transmission Date: 20110219
  Serious: Yes (Hospitalization)
  Sender: FDA-Public Use
  Company Number: FR-ABBOTT-10P-056-0655186-00

PATIENT
  Sex: Female

DRUGS (8)
  1. FENOFIBRATE [Suspect]
     Indication: HYPERCHOLESTEROLAEMIA
     Route: 048
     Dates: end: 20100531
  2. KENZEN 8 MG [Suspect]
     Indication: HYPERTENSION
     Route: 048
     Dates: end: 20100531
  3. INDAPAMIDE [Suspect]
     Indication: HYPERTENSION
     Route: 048
     Dates: end: 20100531
  4. DITROPAN [Suspect]
     Indication: URINARY INCONTINENCE
     Route: 048
     Dates: end: 20100531
  5. DURAGESIC-100 [Concomitant]
     Indication: PAIN
     Route: 062
     Dates: start: 20100524
  6. DURAGESIC-100 [Concomitant]
     Indication: GASTROINTESTINAL DISORDER
  7. IXPRIM [Concomitant]
     Indication: PAIN
     Route: 048
     Dates: start: 20100522, end: 20100524
  8. FORTIMEL [Concomitant]
     Indication: ENTERAL NUTRITION
     Route: 048

REACTIONS (3)
  - FALL [None]
  - HYPONATRAEMIA [None]
  - INAPPROPRIATE ANTIDIURETIC HORMONE SECRETION [None]
